FAERS Safety Report 13640075 (Version 1)
Quarter: 2017Q2

REPORT INFORMATION
  Report Type: Spontaneous
  Country: US (occurrence: US)
  Receive Date: 20170609
  Receipt Date: 20170609
  Transmission Date: 20170830
  Serious: No
  Sender: FDA-Public Use
  Company Number: US-ROCHE-786600

PATIENT
  Sex: Female
  Weight: 45.8 kg

DRUGS (2)
  1. OXYCODONE [Concomitant]
     Active Substance: OXYCODONE
     Route: 065
  2. KLONOPIN [Suspect]
     Active Substance: CLONAZEPAM
     Indication: PANIC ATTACK
     Dosage: FREQUENCY: TID PRN
     Route: 048

REACTIONS (6)
  - Feeling of body temperature change [Unknown]
  - Hypersensitivity [Unknown]
  - Fatigue [Unknown]
  - Stress [Unknown]
  - Panic attack [Unknown]
  - Syncope [Unknown]
